FAERS Safety Report 9137290 (Version 1)
Quarter: 2013Q1

REPORT INFORMATION
  Report Type: Spontaneous
  Country: US (occurrence: US)
  Receive Date: 20130304
  Receipt Date: 20130304
  Transmission Date: 20140127
  Serious: No
  Sender: FDA-Public Use
  Company Number: US-009507513-1303USA001086

PATIENT
  Age: 38 Year
  Sex: Female

DRUGS (2)
  1. AFRIN [Suspect]
     Indication: HYPERSENSITIVITY
     Dosage: UNK, UNKNOWN
     Route: 045
  2. AFRIN [Suspect]
     Indication: NASAL CONGESTION

REACTIONS (1)
  - Feeling jittery [Unknown]
